FAERS Safety Report 9514591 (Version 1)
Quarter: 2013Q3

REPORT INFORMATION
  Report Type: Spontaneous
  Country: ES (occurrence: None)
  Receive Date: 20130906
  Receipt Date: 20130906
  Transmission Date: 20140515
  Serious: Yes (Other)
  Sender: FDA-Public Use
  Company Number: NSR_01237_2013

PATIENT
  Age: 78 Year
  Sex: Female

DRUGS (4)
  1. LEFLUNOMIDE [Suspect]
     Indication: RHEUMATOID ARTHRITIS
     Dosage: DF
     Dates: start: 200908, end: 201105
  2. CORTICOSTEROIDS [Concomitant]
  3. ALENDRONATE [Concomitant]
  4. ETORICOXIB [Concomitant]

REACTIONS (2)
  - Squamous cell carcinoma [None]
  - Keratoacanthoma [None]
